FAERS Safety Report 6473015-X (Version None)
Quarter: 2009Q4

REPORT INFORMATION
  Report Type: 
  Country: None (occurrence: None)
  Receive Date: 20091204
  Receipt Date: 20091123
  Transmission Date: 20100525
  Serious: Yes (Hospitalization, Other)
  Sender: FDA-Public Use
  Company Number: US-BIOGENIDEC-2009BI039169

PATIENT
  Age: 52 Year
  Sex: Male

DRUGS (2)
  1. TYSABRI [Suspect]
     Indication: CROHN'S DISEASE
     Route: 042
     Dates: start: 20080101, end: 20080101
  2. STEROIDS NOS [Concomitant]
     Indication: CROHN'S DISEASE
     Dates: start: 20080101

REACTIONS (3)
  - HEPATOSPLENIC T-CELL LYMPHOMA [None]
  - POLYCYTHAEMIA VERA [None]
  - SPLENIC INFARCTION [None]
